FAERS Safety Report 6890772-9 (Version None)
Quarter: 2010Q3

REPORT INFORMATION
  Report Type: 
  Country: None (occurrence: None)
  Receive Date: 20100731
  Receipt Date: 20090320
  Transmission Date: 20110219
  Serious: No
  Sender: FDA-Public Use
  Company Number: US-PFIZER INC-2009187729

PATIENT
  Sex: Female

DRUGS (1)
  1. LIPITOR [Suspect]
     Indication: BLOOD CHOLESTEROL INCREASED
     Dosage: 40 MG, UNK
     Dates: start: 20050101

REACTIONS (3)
  - DRUG EFFECT DECREASED [None]
  - THROAT IRRITATION [None]
  - WRONG TECHNIQUE IN DRUG USAGE PROCESS [None]
